FAERS Safety Report 8143321-1 (Version None)
Quarter: 2012Q1

REPORT INFORMATION
  Report Type: 
  Country: None (occurrence: None)
  Receive Date: 20120217
  Receipt Date: 20120213
  Transmission Date: 20120608
  Serious: Yes (Other)
  Sender: FDA-Public Use
  Company Number: US-PFIZER INC-2012020061

PATIENT
  Sex: Female
  Weight: 65 kg

DRUGS (9)
  1. PROVENTIL-HFA [Suspect]
     Indication: DYSPNOEA
     Dosage: TWO PUFFS, UNK
  2. NEXIUM [Concomitant]
     Indication: GASTROOESOPHAGEAL REFLUX DISEASE
     Dosage: 40 MG, DAILY
     Route: 048
  3. CHANTIX [Suspect]
     Dosage: UNK
     Route: 048
     Dates: start: 20050101
  4. EFFEXOR [Suspect]
     Indication: ANXIETY
     Dosage: UNK
     Route: 048
  5. OXYCODONE [Concomitant]
     Indication: PAIN
     Dosage: 5 MG, 2X/DAY AS NEEDED
     Route: 048
  6. DIAZEPAM [Concomitant]
     Indication: ANXIETY
     Dosage: 10 MG, 2X/DAY
     Route: 048
  7. CHANTIX [Suspect]
     Dosage: 0.5 MG, 1X/DAY
     Route: 048
     Dates: start: 20120124
  8. LUNESTA [Concomitant]
     Indication: INSOMNIA
     Dosage: UNK
  9. CHANTIX [Suspect]
     Indication: SMOKING CESSATION THERAPY
     Dosage: 0.5 MG, 1X/DAY
     Route: 048
     Dates: start: 20050101, end: 20050101

REACTIONS (9)
  - NIGHTMARE [None]
  - BRONCHITIS [None]
  - STRESS [None]
  - CHRONIC OBSTRUCTIVE PULMONARY DISEASE [None]
  - UTERINE DISORDER [None]
  - ABNORMAL DREAMS [None]
  - EMPHYSEMA [None]
  - HEADACHE [None]
  - ASTHMA [None]
